FAERS Safety Report 4298907-1 (Version None)
Quarter: 2004Q1

REPORT INFORMATION
  Report Type: 
  Country: None (occurrence: None)
  Receive Date: 20040126
  Receipt Date: 20031121
  Transmission Date: 20041129
  Serious: No
  Sender: FDA-Public Use
  Company Number: USA031050329

PATIENT
  Age: 18 Year
  Sex: Male

DRUGS (3)
  1. PROZAC [Suspect]
     Dosage: 100MG
  2. STRATTERA [Suspect]
     Indication: ATTENTION DEFICIT/HYPERACTIVITY DISORDER
     Dosage: 400 MG
     Dates: start: 20030801, end: 20031012
  3. TRILEPTAL [Concomitant]

REACTIONS (1)
  - INTENTIONAL OVERDOSE [None]
